FAERS Safety Report 6414761-3 (Version None)
Quarter: 2009Q4

REPORT INFORMATION
  Report Type: 
  Country: None (occurrence: None)
  Receive Date: 20091026
  Receipt Date: 20091026
  Transmission Date: 20100525
  Serious: Yes (Other)
  Sender: FDA-Public Use
  Company Number: None

PATIENT
  Age: 29 Year
  Sex: Female
  Weight: 65.318 kg

DRUGS (1)
  1. MIRENA [Suspect]
     Indication: HYPOTHYROIDISM
     Dates: start: 20060101

REACTIONS (12)
  - ACNE [None]
  - ANXIETY [None]
  - CONFUSIONAL STATE [None]
  - DIZZINESS [None]
  - FEELING ABNORMAL [None]
  - HOT FLUSH [None]
  - HYPOAESTHESIA [None]
  - HYPOAESTHESIA FACIAL [None]
  - HYPOTHYROIDISM [None]
  - MEMORY IMPAIRMENT [None]
  - PALPITATIONS [None]
  - PARAESTHESIA [None]
